FAERS Safety Report 6495929-7 (Version None)
Quarter: 2009Q4

REPORT INFORMATION
  Report Type: 
  Country: None (occurrence: None)
  Receive Date: 20091214
  Receipt Date: 20090916
  Transmission Date: 20100525
  Serious: No
  Sender: FDA-Public Use
  Company Number: US-BRISTOL-MYERS SQUIBB COMPANY-14759211

PATIENT
  Sex: Female

DRUGS (2)
  1. ABILIFY [Suspect]
     Indication: ANXIETY
     Dosage: DOSE INCEASED TO 20 MG
  2. ABILIFY [Suspect]
     Indication: DEPRESSION
     Dosage: DOSE INCEASED TO 20 MG

REACTIONS (4)
  - ARTHRALGIA [None]
  - BLOOD GLUCOSE INCREASED [None]
  - DYSKINESIA [None]
  - EYE DISORDER [None]
